FAERS Safety Report 11281843 (Version 2)
Quarter: 2015Q3

REPORT INFORMATION
  Report Type: Spontaneous
  Country: US (occurrence: US)
  Receive Date: 20150717
  Receipt Date: 20150911
  Transmission Date: 20151125
  Serious: No
  Sender: FDA-Public Use
  Company Number: US-ASTRAZENECA-2015SE66804

PATIENT
  Age: 920 Month
  Sex: Female
  Weight: 61.2 kg

DRUGS (10)
  1. FISH OIL [Concomitant]
     Active Substance: FISH OIL
     Dosage: 8 OR 10 IN THE AM AND ABOUT 8 AT NIGHT
  2. BRILINTA [Suspect]
     Active Substance: TICAGRELOR
     Indication: STENT PLACEMENT
     Route: 048
     Dates: start: 20150512
  3. ATORVASTATIN [Concomitant]
     Active Substance: ATORVASTATIN
     Indication: BLOOD CHOLESTEROL ABNORMAL
     Route: 048
     Dates: start: 20150512
  4. CALCIUM [Concomitant]
     Active Substance: CALCIUM
     Dosage: 8 OR 10 IN THE AM AND ABOUT 8 AT NIGHT
  5. LISINOPRIL. [Suspect]
     Active Substance: LISINOPRIL
     Indication: STENT PLACEMENT
     Route: 048
     Dates: start: 20150609
  6. LISINOPRIL. [Suspect]
     Active Substance: LISINOPRIL
     Indication: BLOOD PRESSURE ABNORMAL
     Route: 048
     Dates: start: 20150609
  7. ASPIRIN. [Concomitant]
     Active Substance: ASPIRIN
     Indication: ADJUVANT THERAPY
     Route: 048
     Dates: start: 20150512
  8. VITAMINS [Concomitant]
     Active Substance: VITAMINS
  9. TRAMADOL. [Concomitant]
     Active Substance: TRAMADOL
     Indication: PAIN
     Route: 048
     Dates: start: 2014
  10. LECITHIN [Concomitant]
     Active Substance: LECITHIN
     Dosage: 8 OR 10 IN THE AM AND ABOUT 8 AT NIGHT

REACTIONS (4)
  - Skin discolouration [Unknown]
  - Dyspnoea [Not Recovered/Not Resolved]
  - Intentional product use issue [Unknown]
  - Contusion [Unknown]

NARRATIVE: CASE EVENT DATE: 201505
